FAERS Safety Report 8522443-7 (Version None)
Quarter: 2012Q3

REPORT INFORMATION
  Report Type: 
  Country: None (occurrence: None)
  Receive Date: 20120706
  Receipt Date: 20120626
  Transmission Date: 20120928
  Serious: No
  Sender: FDA-Public Use
  Company Number: 2012SP035742

PATIENT
  Age: 57 Year
  Sex: Male

DRUGS (2)
  1. KEIMAX (CEFTIBUTEN  /01166201/) [Suspect]
     Indication: PRODUCT USED FOR UNKNOWN INDICATION
     Dosage: UNK
  2. NASONEX [Suspect]
     Indication: SINUSITIS
     Dates: start: 20120601, end: 20120616

REACTIONS (1)
  - AGEUSIA [None]
